FAERS Safety Report 7698993-2 (Version None)
Quarter: 2011Q3

REPORT INFORMATION
  Report Type: 
  Country: None (occurrence: None)
  Receive Date: 20110819
  Receipt Date: 20110806
  Transmission Date: 20111222
  Serious: Yes (Other)
  Sender: FDA-Public Use
  Company Number: US-BAYER-2011-072552

PATIENT
  Age: 57 Year
  Sex: Female
  Weight: 57 kg

DRUGS (5)
  1. GAMASTAN [IMMUNOGLOBULIN] [Concomitant]
  2. ESTROGENIC SUBSTANCE [Concomitant]
  3. ALLEGRA [Concomitant]
  4. SULFACETAMIDE SODIUM [Concomitant]
  5. ASPIRIN [Suspect]
     Indication: THROMBOSIS
     Dosage: 975 MG, Q4HR
     Route: 048
     Dates: start: 20110701

REACTIONS (2)
  - DRUG EFFECT DECREASED [None]
  - THROMBOSIS [None]
